FAERS Safety Report 5366098-1 (Version None)
Quarter: 2007Q2

REPORT INFORMATION
  Report Type: 
  Country: None (occurrence: None)
  Receive Date: 20070611
  Receipt Date: 20061120
  Transmission Date: 20071010
  Serious: Yes (Death, Other)
  Sender: FDA-Public Use
  Company Number: USA-2006-0024003

PATIENT
  Age: 42 Year
  Sex: Male
  Weight: 83 kg

DRUGS (6)
  1. OXYCONTIN [Suspect]
     Indication: DRUG USE FOR UNKNOWN INDICATION
  2. MORPHINE SULFATE [Suspect]
     Indication: DRUG USE FOR UNKNOWN INDICATION
  3. OXYMORPHONE (OXYMORPHONE) [Suspect]
     Indication: DRUG USE FOR UNKNOWN INDICATION
  4. ALPRAZOLAM [Suspect]
     Indication: DRUG USE FOR UNKNOWN INDICATION
  5. ACETAMINOPHEN [Suspect]
     Indication: DRUG USE FOR UNKNOWN INDICATION
  6. CAFFEINE (CAFFEINE) [Suspect]
     Indication: DRUG USE FOR UNKNOWN INDICATION

REACTIONS (2)
  - MULTIPLE DRUG OVERDOSE ACCIDENTAL [None]
  - SUBSTANCE ABUSE [None]
